FAERS Safety Report 10430749 (Version 5)
Quarter: 2019Q1

REPORT INFORMATION
  Report Type: Report from Study
  Country: US (occurrence: US)
  Receive Date: 20140904
  Receipt Date: 20190221
  Transmission Date: 20190417
  Serious: Yes (Hospitalization, Other)
  Sender: FDA-Public Use
  Company Number: US-BIOMARINAP-US-2014-104019

PATIENT
  Sex: Male

DRUGS (2)
  1. ALDURAZYME [Suspect]
     Active Substance: LARONIDASE
     Indication: MUCOPOLYSACCHARIDOSIS I
     Dosage: 23.2 MG, QW
     Route: 041
     Dates: start: 20090924
  2. ALDURAZYME [Suspect]
     Active Substance: LARONIDASE
     Dosage: 23.2 MG, QW
     Route: 041

REACTIONS (7)
  - Osteotomy [Unknown]
  - Fall [Recovering/Resolving]
  - Spinal cord disorder [Recovering/Resolving]
  - Pyrexia [Unknown]
  - Pain [Unknown]
  - Lower limb fracture [Recovering/Resolving]
  - Urinary tract infection [Not Recovered/Not Resolved]

NARRATIVE: CASE EVENT DATE: 2013
